FAERS Safety Report 10464185 (Version 1)
Quarter: 2014Q3

REPORT INFORMATION
  Report Type: Spontaneous
  Country: ID (occurrence: ID)
  Receive Date: 20140919
  Receipt Date: 20140919
  Transmission Date: 20150326
  Serious: Yes (Other)
  Sender: FDA-Public Use
  Company Number: ID-SA-2014SA125194

PATIENT
  Age: 41 Year
  Sex: Male

DRUGS (7)
  1. ISOSORBIDE DINITRATE. [Concomitant]
     Active Substance: ISOSORBIDE DINITRATE
  2. RAMIPRIL. [Concomitant]
     Active Substance: RAMIPRIL
  3. CLOPIDOGREL BISULFATE. [Suspect]
     Active Substance: CLOPIDOGREL BISULFATE
     Indication: ANTIPLATELET THERAPY
     Route: 065
  4. FUROSEMIDE. [Concomitant]
     Active Substance: FUROSEMIDE
  5. ENOXAPARIN [Concomitant]
     Active Substance: ENOXAPARIN
  6. ASPIRIN. [Suspect]
     Active Substance: ASPIRIN
     Indication: ANTIPLATELET THERAPY
     Route: 065
  7. ATORVASTATIN [Concomitant]
     Active Substance: ATORVASTATIN

REACTIONS (7)
  - Blood pressure decreased [Unknown]
  - Peripheral coldness [Unknown]
  - Acute myocardial infarction [Unknown]
  - Ejection fraction decreased [Unknown]
  - Coronary artery restenosis [Unknown]
  - Drug resistance [Unknown]
  - Dyspnoea [Unknown]
